FAERS Safety Report 13060982 (Version 1)
Quarter: 2016Q4

REPORT INFORMATION
  Report Type: Spontaneous
  Country: GB (occurrence: GB)
  Receive Date: 20161225
  Receipt Date: 20161225
  Transmission Date: 20170207
  Serious: Yes (Life-Threatening)
  Sender: FDA-Public Use
  Company Number: GB-009507513-1612GBR009653

PATIENT
  Age: 60 Year
  Sex: Female
  Weight: 61 kg

DRUGS (2)
  1. ROCURONIUM BROMIDE. [Suspect]
     Active Substance: ROCURONIUM BROMIDE
     Indication: MUSCLE RELAXANT THERAPY
     Dosage: 20 MG, UNK
     Route: 042
     Dates: start: 20161014, end: 20161014
  2. SUCCINYLCHOLINE CHLORIDE. [Interacting]
     Active Substance: SUCCINYLCHOLINE CHLORIDE

REACTIONS (2)
  - Anaphylactic reaction [Recovered/Resolved]
  - Drug interaction [Unknown]

NARRATIVE: CASE EVENT DATE: 20161014
